FAERS Safety Report 7389305-2 (Version None)
Quarter: 2011Q2

REPORT INFORMATION
  Report Type: 
  Country: None (occurrence: None)
  Receive Date: 20110401
  Receipt Date: 20110324
  Transmission Date: 20111010
  Serious: Yes (Hospitalization)
  Sender: FDA-Public Use
  Company Number: A0886388A

PATIENT
  Age: 61 Year
  Sex: Female

DRUGS (12)
  1. THEOPHYLLINE [Concomitant]
  2. FLUTICASONE PROPIONATE [Concomitant]
  3. NAPROXEN [Concomitant]
  4. LISINOPRIL [Concomitant]
  5. PRAZOSIN HCL [Concomitant]
  6. LANTUS [Concomitant]
  7. NORTRIPTYLINE HCL [Concomitant]
  8. ZANTAC [Concomitant]
  9. AVANDIA [Suspect]
     Dosage: 4MG PER DAY
     Route: 048
     Dates: start: 20061113, end: 20100322
  10. METFORMIN HCL [Concomitant]
  11. ZYLOPRIM [Concomitant]
  12. CLONIDINE [Concomitant]

REACTIONS (3)
  - CARDIAC DISORDER [None]
  - TRANSIENT ISCHAEMIC ATTACK [None]
  - CEREBROVASCULAR ACCIDENT [None]
